FAERS Safety Report 5279361-X (Version None)
Quarter: 2007Q1

REPORT INFORMATION
  Report Type: 
  Country: None (occurrence: None)
  Receive Date: 20070328
  Receipt Date: 20060207
  Transmission Date: 20070707
  Serious: No
  Sender: FDA-Public Use
  Company Number: US-AMGEN-US162100

PATIENT
  Sex: Male
  Weight: 63.6 kg

DRUGS (8)
  1. NEUPOGEN [Suspect]
     Indication: NEUTROPENIA
     Route: 058
     Dates: start: 20040811, end: 20051001
  2. NEULASTA [Suspect]
     Indication: NEUTROPENIA
     Route: 058
     Dates: start: 20051001
  3. PROCRIT [Concomitant]
     Route: 058
     Dates: start: 20050601
  4. PREDNISONE [Concomitant]
     Route: 065
  5. PLAQUENIL [Concomitant]
     Route: 048
  6. ALLOPURINOL [Concomitant]
     Route: 048
  7. FOLIC ACID [Concomitant]
     Route: 065
  8. ACTONEL [Concomitant]
     Route: 048

REACTIONS (4)
  - ARTHRALGIA [None]
  - BONE PAIN [None]
  - MUSCULOSKELETAL PAIN [None]
  - PNEUMONIA [None]
